FAERS Safety Report 22858250 (Version 5)
Quarter: 2023Q4

REPORT INFORMATION
  Report Type: Spontaneous
  Country: US (occurrence: US)
  Receive Date: 20230824
  Receipt Date: 20231026
  Transmission Date: 20240110
  Serious: Yes (Other)
  Sender: FDA-Public Use
  Company Number: US-GLAXOSMITHKLINE-US2023AMR112487

PATIENT
  Age: 54 Year
  Sex: Female

DRUGS (5)
  1. ZEJULA [Suspect]
     Active Substance: NIRAPARIB
     Indication: Metastases to abdominal cavity
     Dosage: 200 MG, QD
     Dates: end: 20230728
  2. ZEJULA [Suspect]
     Active Substance: NIRAPARIB
     Dosage: 200 MG, QD
     Dates: end: 20230802
  3. ZEJULA [Suspect]
     Active Substance: NIRAPARIB
     Indication: Ovarian cancer
     Dosage: 200 MG, QD
     Dates: start: 20230813, end: 20230821
  4. ZEJULA [Suspect]
     Active Substance: NIRAPARIB
     Indication: Metastases to peritoneum
     Dosage: 100 MG, QD
     Dates: end: 20230913
  5. MIRALAX [Concomitant]
     Active Substance: POLYETHYLENE GLYCOL 3350
     Indication: Product used for unknown indication
     Dosage: UNK

REACTIONS (12)
  - Neutropenia [Unknown]
  - Laboratory test abnormal [Unknown]
  - Insomnia [Not Recovered/Not Resolved]
  - Decreased appetite [Not Recovered/Not Resolved]
  - Anxiety [Not Recovered/Not Resolved]
  - Blood pressure increased [Recovered/Resolved]
  - Nausea [Unknown]
  - Mood altered [Unknown]
  - Heart rate increased [Unknown]
  - Palpitations [Recovered/Resolved]
  - Product use issue [Unknown]
  - Product dose omission issue [Unknown]

NARRATIVE: CASE EVENT DATE: 20230821
